FAERS Safety Report 13333568 (Version 2)
Quarter: 2017Q2

REPORT INFORMATION
  Report Type: Spontaneous
  Country: US (occurrence: US)
  Receive Date: 20170313
  Receipt Date: 20170420
  Transmission Date: 20170830
  Serious: Yes (Other)
  Sender: FDA-Public Use
  Company Number: US-PFIZER INC-2017099484

PATIENT
  Age: 54 Year
  Sex: Male

DRUGS (1)
  1. VIAGRA [Suspect]
     Active Substance: SILDENAFIL CITRATE
     Indication: ERECTILE DYSFUNCTION
     Dosage: 100 MG, UNK (WHEN NEED)
     Dates: start: 201610

REACTIONS (4)
  - Intervertebral disc protrusion [Unknown]
  - Circadian rhythm sleep disorder [Unknown]
  - Road traffic accident [Unknown]
  - Migraine [Unknown]
